FAERS Safety Report 9789967 (Version 1)
Quarter: 2013Q4

REPORT INFORMATION
  Report Type: Spontaneous
  Country: US (occurrence: None)
  Receive Date: 20131230
  Receipt Date: 20131230
  Transmission Date: 20140711
  Serious: Yes (Disabling)
  Sender: FDA-Public Use
  Company Number: None

PATIENT
  Age: 63 Year
  Sex: Male
  Weight: 73.48 kg

DRUGS (1)
  1. CLOPIDOGREL [Suspect]
     Indication: STENT PLACEMENT
     Dosage: 1 PILL ONCE DAILY TAKEN BY MOUTH
     Route: 048
     Dates: start: 20130829, end: 20131224

REACTIONS (21)
  - Tremor [None]
  - Balance disorder [None]
  - Gait disturbance [None]
  - Loss of control of legs [None]
  - Fatigue [None]
  - Feeling abnormal [None]
  - Feeling abnormal [None]
  - Cough [None]
  - Hypoaesthesia [None]
  - Hypoaesthesia [None]
  - Peripheral coldness [None]
  - Depression [None]
  - Loss of libido [None]
  - Gastric disorder [None]
  - Eructation [None]
  - Flatulence [None]
  - Gingival bleeding [None]
  - Dry mouth [None]
  - Vision blurred [None]
  - Memory impairment [None]
  - Insomnia [None]
